FAERS Safety Report 6283649-3 (Version None)
Quarter: 2009Q3

REPORT INFORMATION
  Report Type: 
  Country: None (occurrence: None)
  Receive Date: 20090724
  Receipt Date: 20090715
  Transmission Date: 20100115
  Serious: Yes (Other)
  Sender: FDA-Public Use
  Company Number: PHHY2009JP29151

PATIENT
  Age: 84 Year
  Sex: Female

DRUGS (1)
  1. TEGRETOL [Suspect]
     Indication: POST HERPETIC NEURALGIA
     Dosage: 300 MG DAILY
     Route: 048
     Dates: start: 20061107, end: 20090620

REACTIONS (2)
  - CONCOMITANT DISEASE AGGRAVATED [None]
  - PULMONARY FIBROSIS [None]
